FAERS Safety Report 5026923-0 (Version None)
Quarter: 2006Q2

REPORT INFORMATION
  Report Type: 
  Country: None (occurrence: None)
  Receive Date: 20060609
  Receipt Date: 20060602
  Transmission Date: 20061013
  Serious: Yes (Other)
  Sender: FDA-Public Use
  Company Number: 2006071951

PATIENT
  Age: 62 Year
  Sex: Female
  Weight: 54 kg

DRUGS (1)
  1. DILANTIN KAPSEAL [Suspect]
     Indication: PROPHYLAXIS
     Dosage: 300 MG (300 MG, 1 IN 1 D), ORAL
     Route: 048
     Dates: start: 19840621, end: 19840703

REACTIONS (2)
  - PANCYTOPENIA [None]
  - PYREXIA [None]
